APPROVED DRUG PRODUCT: SPIRONOLACTONE
Active Ingredient: SPIRONOLACTONE
Strength: 25MG
Dosage Form/Route: TABLET;ORAL
Application: A088053 | Product #001
Applicant: PUREPAC PHARMACEUTICAL CO
Approved: Aug 25, 1983 | RLD: No | RS: No | Type: DISCN